FAERS Safety Report 4364732-6 (Version None)
Quarter: 2004Q2

REPORT INFORMATION
  Report Type: 
  Country: None (occurrence: None)
  Receive Date: 20040521
  Receipt Date: 20040503
  Transmission Date: 20050107
  Serious: Yes (Hospitalization)
  Sender: FDA-Public Use
  Company Number: US_0405102848

PATIENT
  Age: 64 Year
  Sex: Female
  Weight: 78 kg

DRUGS (10)
  1. GEMCITABINE HYDROCHLORIDE-IV (GEMCITABINE) [Suspect]
     Indication: NON-SMALL CELL LUNG CANCER
     Dosage: 1512 MG OTHER
     Route: 050
     Dates: start: 20010919
  2. GEMCITABINE HYDROCHLORIDE-IV (GEMCITABINE) [Suspect]
  3. GEMCITABINE HYDROCHLORIDE-IV (GEMCITABINE) [Suspect]
  4. CARBOPLATIN [Suspect]
     Indication: NON-SMALL CELL LUNG CANCER
     Dosage: 438 MG OTHER
     Route: 050
     Dates: start: 20010919
  5. NEURONTIN [Concomitant]
  6. PHENERGAN [Concomitant]
  7. PENTA-TRIAMTERENE HCTZ [Concomitant]
  8. NORVASC [Concomitant]
  9. PRILOSEC [Concomitant]
  10. POTASSIUM [Concomitant]

REACTIONS (5)
  - CONJUNCTIVAL HAEMORRHAGE [None]
  - CONVULSION [None]
  - HAEMATOCRIT DECREASED [None]
  - HAEMOGLOBIN DECREASED [None]
  - THROMBOCYTOPENIA [None]
